FAERS Safety Report 9767728 (Version 1)
Quarter: 2013Q4

REPORT INFORMATION
  Report Type: Report from Study
  Country: ES (occurrence: ES)
  Receive Date: 20131217
  Receipt Date: 20131217
  Transmission Date: 20140711
  Serious: Yes (Other)
  Sender: FDA-Public Use
  Company Number: ES-JNJFOC-20131210131

PATIENT
  Sex: 0

DRUGS (18)
  1. INFLIXIMAB, RECOMBINANT [Suspect]
     Indication: IMMUNE SYSTEM DISORDER
     Route: 042
  2. INFLIXIMAB, RECOMBINANT [Suspect]
     Indication: ARTHRITIS
     Route: 042
  3. INFLIXIMAB, RECOMBINANT [Suspect]
     Indication: PSORIATIC ARTHROPATHY
     Route: 042
  4. INFLIXIMAB, RECOMBINANT [Suspect]
     Indication: ANKYLOSING SPONDYLITIS
     Route: 042
  5. INFLIXIMAB, RECOMBINANT [Suspect]
     Indication: RHEUMATOID ARTHRITIS
     Route: 042
  6. METHOTREXATE [Suspect]
     Indication: IMMUNE SYSTEM DISORDER
     Route: 065
  7. METHOTREXATE [Suspect]
     Indication: ARTHRITIS
     Route: 065
  8. METHOTREXATE [Suspect]
     Indication: PSORIATIC ARTHROPATHY
     Route: 065
  9. METHOTREXATE [Suspect]
     Indication: ANKYLOSING SPONDYLITIS
     Route: 065
  10. METHOTREXATE [Suspect]
     Indication: RHEUMATOID ARTHRITIS
     Route: 065
  11. LEFLUNOMIDE [Suspect]
     Indication: IMMUNE SYSTEM DISORDER
     Route: 065
  12. LEFLUNOMIDE [Suspect]
     Indication: ARTHRITIS
     Route: 065
  13. LEFLUNOMIDE [Suspect]
     Indication: PSORIATIC ARTHROPATHY
     Route: 065
  14. LEFLUNOMIDE [Suspect]
     Indication: ANKYLOSING SPONDYLITIS
     Route: 065
  15. LEFLUNOMIDE [Suspect]
     Indication: RHEUMATOID ARTHRITIS
     Route: 065
  16. GLUCOCORTICOIDS [Suspect]
     Indication: PSORIATIC ARTHROPATHY
     Route: 065
  17. GLUCOCORTICOIDS [Suspect]
     Indication: ANKYLOSING SPONDYLITIS
     Route: 065
  18. GLUCOCORTICOIDS [Suspect]
     Indication: RHEUMATOID ARTHRITIS
     Route: 065

REACTIONS (26)
  - Vitiligo [Unknown]
  - Rash generalised [Unknown]
  - Psoriasis [Unknown]
  - Systemic inflammatory response syndrome [Unknown]
  - Oedema [Unknown]
  - Infusion site reaction [Unknown]
  - Skin ulcer [Unknown]
  - Bacterial infection [Unknown]
  - Herpes zoster [Unknown]
  - Varicella [Unknown]
  - Viral infection [Unknown]
  - Tuberculosis [Unknown]
  - Fungal infection [Unknown]
  - Skin cancer [Unknown]
  - Malignant melanoma [Unknown]
  - Tongue neoplasm [Unknown]
  - Mycosis fungoides [Unknown]
  - Fibroma [Unknown]
  - Drug hypersensitivity [Unknown]
  - Mouth cyst excision [Unknown]
  - Cutaneous lupus erythematosus [Unknown]
  - Cutaneous vasculitis [Unknown]
  - Alopecia areata [Unknown]
  - Off label use [Unknown]
  - Polychondritis [Unknown]
  - Morphoea [Unknown]
